FAERS Safety Report 6984162-8 (Version None)
Quarter: 2010Q3

REPORT INFORMATION
  Report Type: 
  Country: None (occurrence: None)
  Receive Date: 20100915
  Receipt Date: 20090519
  Transmission Date: 20110219
  Serious: No
  Sender: FDA-Public Use
  Company Number: US-WYE-H09443209

PATIENT
  Sex: Female
  Weight: 99.88 kg

DRUGS (3)
  1. ADVIL PM [Suspect]
     Indication: INSOMNIA
     Route: 048
     Dates: start: 20090401
  2. CELEXA [Concomitant]
  3. TRILEPTAL [Concomitant]

REACTIONS (2)
  - DYSURIA [None]
  - INTRAOCULAR PRESSURE INCREASED [None]
